FAERS Safety Report 8954514 (Version 1)
Quarter: 2012Q4

REPORT INFORMATION
  Report Type: 
  Country: US (occurrence: US)
  Receive Date: 20121209
  Receipt Date: 20121209
  Transmission Date: 20130627
  Serious: Yes (Other)
  Sender: FDA-Public Use
  Company Number: US-SANOFI-AVENTIS-2012SA088270

PATIENT
  Age: 75 Year
  Sex: Female

DRUGS (13)
  1. MULTAQ [Suspect]
     Indication: ATRIAL FIBRILLATION
     Route: 048
     Dates: start: 201208
  2. NEBIVOLOL [Suspect]
     Route: 065
  3. ERYTHROMYCIN [Interacting]
     Route: 065
  4. COENZYME Q10 [Concomitant]
  5. RAMIPRIL [Concomitant]
  6. EVISTA [Concomitant]
  7. NEURONTIN [Concomitant]
  8. NEXIUM /UNK/ [Concomitant]
     Dosage: occasionally
  9. KLONOPIN [Concomitant]
     Dosage: at bedtime (1/2 a 0.5 mg tablet)
  10. XOPENEX [Concomitant]
  11. MIRALAX [Concomitant]
  12. METAMUCIL [Concomitant]
  13. ALL OTHER THERAPEUTIC PRODUCTS [Concomitant]

REACTIONS (16)
  - Cardiac arrest [Recovered/Resolved]
  - Ill-defined disorder [Unknown]
  - Dry eye [Not Recovered/Not Resolved]
  - Dry eye [Unknown]
  - Dry mouth [Unknown]
  - Dry skin [Unknown]
  - Nasal dryness [Unknown]
  - Nasal discomfort [Unknown]
  - Tendonitis [Unknown]
  - Muscular weakness [Unknown]
  - Drug interaction [Unknown]
  - Dry throat [Unknown]
  - Cough [Unknown]
  - Dysphagia [Unknown]
  - Dyspnoea [Not Recovered/Not Resolved]
  - Chest pain [Unknown]
